FAERS Safety Report 9743265 (Version 1)
Quarter: 2013Q4

REPORT INFORMATION
  Report Type: Spontaneous
  Country: US (occurrence: US)
  Receive Date: 20131210
  Receipt Date: 20131210
  Transmission Date: 20140711
  Serious: No
  Sender: FDA-Public Use
  Company Number: US-GILEAD-2009-0025470

PATIENT
  Age: 42 Year
  Sex: Female

DRUGS (14)
  1. LETAIRIS [Suspect]
     Indication: PULMONARY ARTERIAL HYPERTENSION
     Route: 048
     Dates: start: 20090724
  2. WARFARIN [Concomitant]
  3. MULTIVITAMINS [Concomitant]
  4. AZATHIOPRINE [Concomitant]
  5. OMEPRAZOLE [Concomitant]
  6. LASIX [Concomitant]
  7. POTASSIUM [Concomitant]
  8. COLCHICINE [Concomitant]
  9. CODEINE/APAP [Concomitant]
  10. PROMETHAZINE [Concomitant]
  11. REQUIP [Concomitant]
  12. PULMICORT [Concomitant]
  13. REVATIO [Concomitant]
  14. PREDNISONE [Concomitant]

REACTIONS (1)
  - Joint swelling [Not Recovered/Not Resolved]
